FAERS Safety Report 9632045 (Version 1)
Quarter: 2013Q4

REPORT INFORMATION
  Report Type: Spontaneous
  Country: US (occurrence: US)
  Receive Date: 20131018
  Receipt Date: 20131018
  Transmission Date: 20140711
  Serious: No
  Sender: FDA-Public Use
  Company Number: US-BAXTER-2013BAX039800

PATIENT
  Sex: 0

DRUGS (1)
  1. DOBUTAMINE HYDROCHLORIDE IN 5% DEXTROSE INJECTION [Suspect]
     Indication: PRODUCT USED FOR UNKNOWN INDICATION
     Dosage: 10 MCG/KG/MIN
     Route: 042
     Dates: start: 20130926

REACTIONS (2)
  - Device infusion issue [Recovered/Resolved]
  - Haemodynamic instability [Unknown]
